FAERS Safety Report 5488564-0 (Version None)
Quarter: 2007Q4

REPORT INFORMATION
  Report Type: 
  Country: None (occurrence: None)
  Receive Date: 20071017
  Receipt Date: 20071011
  Transmission Date: 20080405
  Serious: Yes (Other)
  Sender: FDA-Public Use
  Company Number: NL-SANOFI-SYNTHELABO-A01200710947

PATIENT
  Sex: Male

DRUGS (4)
  1. ZOFRAN [Concomitant]
     Dosage: 8 MG
     Route: 042
     Dates: start: 20070927, end: 20070927
  2. DEXAMETHASONE [Concomitant]
     Dosage: 5 MG
     Route: 042
     Dates: start: 20070927, end: 20070927
  3. SODIUM CHLORIDE 0.9% [Suspect]
     Dosage: UNK
     Route: 042
     Dates: start: 20070927, end: 20070927
  4. ELOXATIN [Suspect]
     Dosage: UNK
     Route: 042
     Dates: start: 20070927, end: 20070927

REACTIONS (4)
  - BRONCHOSPASM [None]
  - HYPOTENSION [None]
  - SYNCOPE [None]
  - WRONG TECHNIQUE IN DRUG USAGE PROCESS [None]
